FAERS Safety Report 6261780-6 (Version None)
Quarter: 2009Q3

REPORT INFORMATION
  Report Type: 
  Country: None (occurrence: None)
  Receive Date: 20090709
  Receipt Date: 20090629
  Transmission Date: 20100115
  Serious: Yes (Hospitalization, Other)
  Sender: FDA-Public Use
  Company Number: FR-ELI_LILLY_AND_COMPANY-FR200906006653

PATIENT
  Sex: Male

DRUGS (3)
  1. ZYPREXA [Suspect]
     Dosage: 5 MG, DAILY (1/D)
     Route: 048
     Dates: start: 20090228, end: 20090302
  2. KARDEGIC [Concomitant]
     Dosage: 75 MG, UNK
     Route: 048
  3. MUCOMYST [Concomitant]
     Dosage: 600 MEQ, DAILY (1/D)
     Route: 048
     Dates: start: 20090228, end: 20090303

REACTIONS (3)
  - DEMENTIA [None]
  - EXTRAPYRAMIDAL DISORDER [None]
  - FALL [None]
